FAERS Safety Report 19178328 (Version 2)
Quarter: 2021Q2

REPORT INFORMATION
  Report Type: Spontaneous
  Country: FR (occurrence: FR)
  Receive Date: 20210426
  Receipt Date: 20210504
  Transmission Date: 20210717
  Serious: Yes (Other)
  Sender: FDA-Public Use
  Company Number: FR-BAUSCH-BL-2021-013946

PATIENT
  Age: 24 Year
  Sex: Female

DRUGS (1)
  1. LOCOID [Suspect]
     Active Substance: HYDROCORTISONE BUTYRATE
     Indication: ECZEMA
     Dosage: 1 TO 2 APPLICATIONS PER DAY?HEAVY CREAM FOR LOCAL APPLICATION
     Route: 003
     Dates: start: 20210318, end: 20210320

REACTIONS (4)
  - Oedema [Recovering/Resolving]
  - Urticaria [Recovering/Resolving]
  - Eyelid disorder [Recovering/Resolving]
  - Swelling face [Recovering/Resolving]

NARRATIVE: CASE EVENT DATE: 20210319
